FAERS Safety Report 16834412 (Version 2)
Quarter: 2019Q4

REPORT INFORMATION
  Report Type: Spontaneous
  Country: US (occurrence: US)
  Receive Date: 20190920
  Receipt Date: 20191003
  Transmission Date: 20200122
  Serious: Yes (Other)
  Sender: FDA-Public Use
  Company Number: US-ELI_LILLY_AND_COMPANY-US201909005439

PATIENT
  Sex: Female

DRUGS (2)
  1. BASAGLAR [Suspect]
     Active Substance: INSULIN GLARGINE
     Indication: TYPE 1 DIABETES MELLITUS
     Dosage: 30 DOSAGE FORM, EACH MORNING
     Route: 058
     Dates: start: 201901
  2. HUMALOG [Suspect]
     Active Substance: INSULIN LISPRO
     Indication: TYPE 1 DIABETES MELLITUS
     Dosage: 8-10 U
     Route: 058

REACTIONS (2)
  - Blindness [Unknown]
  - Accidental exposure to product [Unknown]
